FAERS Safety Report 6452225-1 (Version None)
Quarter: 2009Q4

REPORT INFORMATION
  Report Type: 
  Country: None (occurrence: None)
  Receive Date: 20091123
  Receipt Date: 20091109
  Transmission Date: 20100525
  Serious: Yes (Hospitalization, Other)
  Sender: FDA-Public Use
  Company Number: PHHO2009DE10340

PATIENT
  Sex: Male
  Weight: 62 kg

DRUGS (9)
  1. STI571/CGP57148B T35717+TAB [Suspect]
     Indication: COLORECTAL CANCER
     Dosage: 200 MG, QD
     Route: 048
     Dates: start: 20080507, end: 20090831
  2. CAPECITABINE [Suspect]
     Indication: COLORECTAL CANCER
     Dosage: 1000 MG ONCE A DAY
     Route: 048
     Dates: start: 20080507, end: 20090831
  3. OXALIPLATIN [Suspect]
     Indication: COLORECTAL CANCER
     Dosage: 180 MG ONCE EVERY 3 WEEKS
     Route: 042
     Dates: start: 20080507, end: 20090831
  4. RAMIPRIL [Concomitant]
  5. BISOPROLOL [Concomitant]
  6. AMARYL [Concomitant]
  7. HYDROCHLOROTHIAZIDE [Concomitant]
  8. FUROSEMIDE [Concomitant]
  9. PANTOZOL [Concomitant]

REACTIONS (10)
  - ASTHENIA [None]
  - BLOOD CALCITONIN DECREASED [None]
  - C-REACTIVE PROTEIN INCREASED [None]
  - DEHYDRATION [None]
  - DIARRHOEA [None]
  - GAIT DISTURBANCE [None]
  - GENERAL PHYSICAL HEALTH DETERIORATION [None]
  - HYPOKALAEMIA [None]
  - NEUROPATHY PERIPHERAL [None]
  - PROSTATOMEGALY [None]
